FAERS Safety Report 5132453-8 (Version None)
Quarter: 2006Q4

REPORT INFORMATION
  Report Type: 
  Country: None (occurrence: None)
  Receive Date: 20061017
  Receipt Date: 20060929
  Transmission Date: 20070319
  Serious: Yes (Hospitalization)
  Sender: FDA-Public Use
  Company Number: 8019364

PATIENT
  Sex: Female

DRUGS (2)
  1. KEPPRA [Suspect]
  2. VALPROATE SODIUM [Concomitant]

REACTIONS (1)
  - HEPATIC ADENOMA [None]
